FAERS Safety Report 22110342 (Version 1)
Quarter: 2023Q1

REPORT INFORMATION
  Report Type: Spontaneous
  Country: PT (occurrence: PT)
  Receive Date: 20230317
  Receipt Date: 20230317
  Transmission Date: 20230418
  Serious: Yes (Other)
  Sender: FDA-Public Use
  Company Number: None

PATIENT
  Age: 82 Year
  Sex: Male

DRUGS (2)
  1. CAPECITABINE [Suspect]
     Active Substance: CAPECITABINE
     Indication: Adenocarcinoma of colon
     Route: 065
     Dates: start: 20220523
  2. ALYMSYS [Suspect]
     Active Substance: BEVACIZUMAB-MALY
     Indication: Adenocarcinoma of colon
     Route: 065
     Dates: start: 20220523

REACTIONS (3)
  - Disease progression [Unknown]
  - Proteinuria [Recovered/Resolved]
  - Decreased appetite [Unknown]

NARRATIVE: CASE EVENT DATE: 20220428
